FAERS Safety Report 10035975 (Version 2)
Quarter: 2014Q2

REPORT INFORMATION
  Report Type: Report from Study
  Country: US (occurrence: US)
  Receive Date: 20140325
  Receipt Date: 20140409
  Transmission Date: 20141212
  Serious: Yes (Hospitalization)
  Sender: FDA-Public Use
  Company Number: US-ABBVIE-14P-163-1214004-00

PATIENT
  Sex: Female
  Weight: 73.09 kg

DRUGS (6)
  1. HUMIRA [Suspect]
     Indication: RHEUMATOID ARTHRITIS
     Dates: start: 20121112
  2. METHOTREXATE [Concomitant]
     Indication: RHEUMATOID ARTHRITIS
     Dosage: 8 PILLS EVERY SUNDAY
  3. FOLIC ACID [Concomitant]
     Indication: PRODUCT USED FOR UNKNOWN INDICATION
  4. ATORVASTATIN [Concomitant]
     Indication: BLOOD CHOLESTEROL
  5. ESTRADIOL [Concomitant]
     Indication: HORMONE REPLACEMENT THERAPY
  6. BABY ASPIRIN [Concomitant]
     Indication: PROPHYLAXIS
     Dosage: DAILY

REACTIONS (3)
  - Metrorrhagia [Recovered/Resolved]
  - Menstruation irregular [Recovered/Resolved]
  - Menorrhagia [Recovered/Resolved]
